FAERS Safety Report 21794535 (Version 1)
Quarter: 2022Q4

REPORT INFORMATION
  Report Type: Report from Study
  Country: US (occurrence: US)
  Receive Date: 20221229
  Receipt Date: 20221229
  Transmission Date: 20230112
  Serious: No
  Sender: FDA-Public Use
  Company Number: US-ABBVIE-22K-163-4367436-00

PATIENT
  Age: 37 Year
  Sex: Female

DRUGS (2)
  1. HUMIRA [Suspect]
     Active Substance: ADALIMUMAB
     Indication: Colitis ulcerative
     Dosage: CITRATE FREE
     Route: 058
     Dates: end: 2021
  2. HUMIRA [Suspect]
     Active Substance: ADALIMUMAB

REACTIONS (8)
  - Maternal exposure during pregnancy [Unknown]
  - Live birth [Unknown]
  - Pre-eclampsia [Unknown]
  - Injection site swelling [Unknown]
  - Colitis ulcerative [Not Recovered/Not Resolved]
  - COVID-19 [Recovered/Resolved]
  - Injection site pruritus [Unknown]
  - Stress [Unknown]

NARRATIVE: CASE EVENT DATE: 20211201
